FAERS Safety Report 5754536-1 (Version None)
Quarter: 2008Q2

REPORT INFORMATION
  Report Type: 
  Country: None (occurrence: None)
  Receive Date: 20080530
  Receipt Date: 20080521
  Transmission Date: 20081010
  Serious: Yes (Other)
  Sender: FDA-Public Use
  Company Number: GB-PFIZER INC-2008036474

PATIENT
  Sex: Male

DRUGS (1)
  1. SUTENT [Suspect]
     Route: 048
     Dates: start: 20080321, end: 20080328

REACTIONS (3)
  - HAEMOGLOBIN DECREASED [None]
  - HAEMORRHOIDS [None]
  - RECTAL HAEMORRHAGE [None]
